FAERS Safety Report 5325322-1 (Version None)
Quarter: 2007Q2

REPORT INFORMATION
  Report Type: 
  Country: None (occurrence: None)
  Receive Date: 20070509
  Receipt Date: 20070426
  Transmission Date: 20071010
  Serious: Yes (Life-Threatening)
  Sender: FDA-Public Use
  Company Number: GXKR2007CA03880

PATIENT
  Age: 73 Year
  Sex: Female

DRUGS (5)
  1. PROPRANOLOL [Suspect]
     Indication: HEART RATE
     Dosage: 4 MG IN DIVIDED DOSES, INTRAVENOUS
     Route: 042
  2. PROCAINAMIDE (NGX) (PROCAINAMIDE) UNKNOWN [Suspect]
     Indication: ATRIAL FIBRILLATION
     Dosage: SEE IMAGE
     Route: 042
  3. PROPAFENONE (NGX) (PROPAFENONE) UNKNOWN [Suspect]
     Indication: ATRIAL FIBRILLATION
     Dosage: SEE IMAGE
     Route: 048
  4. ASPIRIN [Concomitant]
  5. DILTIAZEM [Concomitant]

REACTIONS (7)
  - DRUG TOXICITY [None]
  - DYSPNOEA [None]
  - FALL [None]
  - LOSS OF CONSCIOUSNESS [None]
  - NO THERAPEUTIC RESPONSE [None]
  - TACHYCARDIA [None]
  - VOMITING [None]
